FAERS Safety Report 7596286-5 (Version None)
Quarter: 2011Q3

REPORT INFORMATION
  Report Type: 
  Country: None (occurrence: None)
  Receive Date: 20110707
  Receipt Date: 20110630
  Transmission Date: 20111222
  Serious: Yes (Hospitalization)
  Sender: FDA-Public Use
  Company Number: AT-CEPHALON-2011003287

PATIENT
  Sex: Male
  Weight: 76 kg

DRUGS (4)
  1. RITUXIMAB [Suspect]
     Indication: NON-HODGKIN'S LYMPHOMA
     Route: 042
     Dates: start: 20110224
  2. RITUXIMAB [Suspect]
     Route: 042
     Dates: start: 20110323, end: 20110324
  3. BENDAMUSTINE HCL [Suspect]
     Indication: NON-HODGKIN'S LYMPHOMA
     Route: 042
     Dates: start: 20110225
  4. BENDAMUSTINE HCL [Suspect]
     Route: 042
     Dates: start: 20110323, end: 20110324

REACTIONS (1)
  - SYNOVIAL RUPTURE [None]
